FAERS Safety Report 9800021 (Version 1)
Quarter: 2014Q1

REPORT INFORMATION
  Report Type: Spontaneous
  Country: US (occurrence: US)
  Receive Date: 20140106
  Receipt Date: 20140106
  Transmission Date: 20141002
  Serious: No
  Sender: FDA-Public Use
  Company Number: US-GILEAD-2010-0030967

PATIENT
  Age: 83 Year
  Sex: Female
  Weight: 101.15 kg

DRUGS (16)
  1. LETAIRIS [Suspect]
     Indication: PULMONARY ARTERIAL HYPERTENSION
     Route: 048
     Dates: start: 20100715
  2. REVATIO [Concomitant]
     Indication: PULMONARY ARTERIAL HYPERTENSION
     Dates: start: 20100111
  3. CARVEDILOL [Concomitant]
  4. NIFEDIPINE ER [Concomitant]
  5. SINGULAIR [Concomitant]
  6. ADVAIR 100-50 DISKUS [Concomitant]
  7. PROAIR HFA [Concomitant]
  8. BENAZEPRIL [Concomitant]
  9. SIMVASTATIN [Concomitant]
  10. LASIX [Concomitant]
  11. LEVOXYL [Concomitant]
  12. NEXIUM [Concomitant]
  13. ASPIRIN [Concomitant]
  14. NAPROSYN [Concomitant]
  15. IRON TABLET [Concomitant]
  16. POTASSIUM CHLORIDE [Concomitant]

REACTIONS (1)
  - Local swelling [Unknown]
